FAERS Safety Report 25612824 (Version 5)
Quarter: 2025Q4

REPORT INFORMATION
  Report Type: Report from Study
  Country: CA (occurrence: CA)
  Receive Date: 20250728
  Receipt Date: 20251215
  Transmission Date: 20260118
  Serious: Yes (Other)
  Sender: CELLTRION
  Company Number: CA-CELLTRION INC.-2025CA004813

PATIENT

DRUGS (4)
  1. USTEKINUMAB [Suspect]
     Active Substance: USTEKINUMAB
     Indication: Crohn^s disease
     Dosage: 90 MG EVERY 4 WEEKS/ONCE EVERY 4 WEEKS
     Route: 058
     Dates: start: 20250212
  2. USTEKINUMAB [Suspect]
     Active Substance: USTEKINUMAB
     Dosage: 1ML, 90 MG
     Dates: start: 20250303
  3. USTEKINUMAB [Suspect]
     Active Substance: USTEKINUMAB
     Dosage: 90 MG
     Dates: start: 20251014
  4. USTEKINUMAB [Suspect]
     Active Substance: USTEKINUMAB
     Dosage: 1ML/90 MG EVERY 4 WEEKS
     Dates: start: 20251124

REACTIONS (8)
  - Cystitis noninfective [Unknown]
  - Fistula [Unknown]
  - Suprapubic pain [Recovered/Resolved]
  - Diarrhoea [Unknown]
  - Arthralgia [Unknown]
  - Illness [Recovering/Resolving]
  - Intentional dose omission [Unknown]
  - Intentional product use issue [Unknown]

NARRATIVE: CASE EVENT DATE: 20250212
